FAERS Safety Report 25678503 (Version 1)
Quarter: 2025Q3

REPORT INFORMATION
  Report Type: Spontaneous
  Country: US (occurrence: US)
  Receive Date: 20250813
  Receipt Date: 20250813
  Transmission Date: 20251020
  Serious: Yes (Other)
  Sender: ALEXION PHARMACEUTICALS
  Company Number: US-AstraZeneca-CH-00927728A

PATIENT
  Sex: Female

DRUGS (2)
  1. SYMBICORT [Suspect]
     Active Substance: BUDESONIDE\FORMOTEROL FUMARATE DIHYDRATE
     Route: 065
  2. PREDNISONE [Concomitant]
     Active Substance: PREDNISONE
     Route: 065

REACTIONS (11)
  - Illness [Unknown]
  - Rhinorrhoea [Unknown]
  - Migraine [Unknown]
  - Throat tightness [Unknown]
  - Eye pruritus [Unknown]
  - Mass [Unknown]
  - Chest discomfort [Unknown]
  - Aphasia [Unknown]
  - Gait disturbance [Unknown]
  - Respiratory arrest [Unknown]
  - Wheezing [Unknown]
